FAERS Safety Report 6764476-7 (Version None)
Quarter: 2010Q2

REPORT INFORMATION
  Report Type: 
  Country: None (occurrence: None)
  Receive Date: 20100609
  Receipt Date: 20100414
  Transmission Date: 20101027
  Serious: No
  Sender: FDA-Public Use
  Company Number: 2010008871

PATIENT
  Age: 10 Month
  Sex: Female

DRUGS (2)
  1. CHILDREN'S ZYRTEC ALLERGY [Suspect]
     Indication: FOOD ALLERGY
     Dosage: 1/2 A TSP ONCE DAILY ORAL
     Route: 048
  2. CHILDREN'S BENADRYL ALLERGY [Suspect]
     Indication: FOOD ALLERGY
     Dosage: 3/4 A TSP AS NEEDED ORAL
     Route: 048

REACTIONS (2)
  - PRODUCT QUALITY ISSUE [None]
  - WRONG DRUG ADMINISTERED [None]
